FAERS Safety Report 7602662-4 (Version None)
Quarter: 2011Q3

REPORT INFORMATION
  Report Type: 
  Country: None (occurrence: None)
  Receive Date: 20110712
  Receipt Date: 20110627
  Transmission Date: 20111222
  Serious: Yes (Other)
  Sender: FDA-Public Use
  Company Number: US-ELI_LILLY_AND_COMPANY-US201106007948

PATIENT
  Sex: Female

DRUGS (2)
  1. CYMBALTA [Suspect]
  2. LYRICA [Concomitant]
     Dosage: UNK
     Dates: end: 20110501

REACTIONS (7)
  - RASH [None]
  - BLISTER [None]
  - DRUG EFFECT DELAYED [None]
  - MALAISE [None]
  - URTICARIA [None]
  - HYPERSENSITIVITY [None]
  - DYSPNOEA [None]
